FAERS Safety Report 22156511 (Version 1)
Quarter: 2023Q1

REPORT INFORMATION
  Report Type: Spontaneous
  Country: CN (occurrence: CN)
  Receive Date: 20230330
  Receipt Date: 20230330
  Transmission Date: 20230418
  Serious: Yes (Life-Threatening, Other)
  Sender: FDA-Public Use
  Company Number: CN-SA-SAC20230328000311

PATIENT
  Age: 72 Year
  Sex: Female
  Weight: 42 kg

DRUGS (8)
  1. CLOPIDOGREL BISULFATE [Suspect]
     Active Substance: CLOPIDOGREL BISULFATE
     Indication: Platelet aggregation inhibition
     Dosage: 75 MG, QD
     Route: 048
     Dates: start: 20230307, end: 20230311
  2. ASPIRIN [Suspect]
     Active Substance: ASPIRIN
     Indication: Platelet aggregation inhibition
     Dosage: 0.1 G, QD
     Route: 048
     Dates: start: 20230307, end: 20230311
  3. NADROPARIN CALCIUM [Suspect]
     Active Substance: NADROPARIN CALCIUM
     Indication: Platelet aggregation inhibition
     Dosage: 4100 U, BID
     Route: 058
     Dates: start: 20230307, end: 20230308
  4. NADROPARIN CALCIUM [Suspect]
     Active Substance: NADROPARIN CALCIUM
     Dosage: 4100 U, QD
     Route: 058
     Dates: start: 20230309, end: 20230311
  5. PANTOPRAZOLE SODIUM [Concomitant]
     Active Substance: PANTOPRAZOLE SODIUM
     Indication: Gastrointestinal mucosal disorder
     Dosage: 40 MG, QD
     Route: 048
     Dates: start: 20230307, end: 20230310
  6. ATORVASTATIN CALCIUM [Concomitant]
     Active Substance: ATORVASTATIN CALCIUM
     Indication: Prophylaxis
     Dosage: 20 MG, QD
     Route: 048
     Dates: start: 20230307, end: 20230312
  7. NOREPINEPHRINE BITARTRATE [Concomitant]
     Active Substance: NOREPINEPHRINE BITARTRATE
     Indication: Atrial fibrillation
     Dosage: 12 MG
     Dates: start: 202303
  8. DEXTROSE [Concomitant]
     Active Substance: DEXTROSE
     Indication: Atrial fibrillation
     Dosage: 44 ML
     Dates: start: 202303

REACTIONS (15)
  - Cerebellar infarction [Recovering/Resolving]
  - Depressed level of consciousness [Recovering/Resolving]
  - Haemoptysis [Recovering/Resolving]
  - Haemorrhagic cerebellar infarction [Recovering/Resolving]
  - Hydrocephalus [Recovering/Resolving]
  - Coma [Recovering/Resolving]
  - Cerebellar haemorrhage [Recovering/Resolving]
  - Subarachnoid haemorrhage [Recovering/Resolving]
  - Breath sounds abnormal [Recovering/Resolving]
  - Nausea [Recovering/Resolving]
  - Vomiting [Recovering/Resolving]
  - Oedema [Recovering/Resolving]
  - Haematocoele [Recovering/Resolving]
  - Dizziness [Recovering/Resolving]
  - Headache [Recovering/Resolving]

NARRATIVE: CASE EVENT DATE: 20230301
